FAERS Safety Report 19461127 (Version 10)
Quarter: 2023Q2

REPORT INFORMATION
  Report Type: Report from Study
  Country: US (occurrence: US)
  Receive Date: 20210625
  Receipt Date: 20230630
  Transmission Date: 20230721
  Serious: Yes (Hospitalization, Other)
  Sender: FDA-Public Use
  Company Number: US-TAKEDA-2021TUS036592

PATIENT
  Age: 88 Year
  Sex: Female

DRUGS (2)
  1. IXAZOMIB [Suspect]
     Active Substance: IXAZOMIB
     Indication: Plasma cell myeloma
     Dosage: 3 MILLIGRAM
     Route: 048
     Dates: start: 20190214
  2. DEXAMETHASONE [Suspect]
     Active Substance: DEXAMETHASONE
     Indication: Product used for unknown indication
     Dosage: UNK
     Route: 065

REACTIONS (20)
  - Syncope [Unknown]
  - Seizure [Unknown]
  - Dementia Alzheimer^s type [Unknown]
  - Malaise [Unknown]
  - Blood pressure increased [Unknown]
  - Illness [Unknown]
  - COVID-19 [Recovering/Resolving]
  - Asthenia [Recovering/Resolving]
  - Dysstasia [Recovering/Resolving]
  - Weight decreased [Recovering/Resolving]
  - Diarrhoea [Unknown]
  - Back pain [Unknown]
  - Peripheral swelling [Unknown]
  - Localised infection [Recovering/Resolving]
  - Renal disorder [Unknown]
  - Memory impairment [Unknown]
  - Pain in extremity [Unknown]
  - Constipation [Unknown]
  - Chest pain [Recovering/Resolving]
  - Product dose omission issue [Unknown]

NARRATIVE: CASE EVENT DATE: 20230301
